FAERS Safety Report 10584902 (Version 1)
Quarter: 2014Q4

REPORT INFORMATION
  Report Type: Spontaneous
  Country: US (occurrence: US)
  Receive Date: 20141114
  Receipt Date: 20141114
  Transmission Date: 20150529
  Serious: Yes (Other)
  Sender: FDA-Public Use
  Company Number: US-009507513-1411USA003871

PATIENT
  Sex: Female

DRUGS (1)
  1. NEXPLANON [Suspect]
     Active Substance: ETONOGESTREL
     Route: 067

REACTIONS (3)
  - Unintended pregnancy [Recovered/Resolved]
  - Incorrect route of drug administration [Unknown]
  - Abortion spontaneous [Unknown]
